FAERS Safety Report 24122561 (Version 1)
Quarter: 2024Q3

REPORT INFORMATION
  Report Type: Spontaneous
  Country: US (occurrence: US)
  Receive Date: 20240723
  Receipt Date: 20240723
  Transmission Date: 20241017
  Serious: Yes (Hospitalization, Other)
  Sender: SPECGX
  Company Number: US-SPECGX-T202401519

PATIENT
  Age: 66 Year
  Sex: Male

DRUGS (4)
  1. OXYCODONE [Suspect]
     Active Substance: OXYCODONE
     Indication: Pain
     Dosage: UNK
     Route: 065
  2. NALTREXONE [Suspect]
     Active Substance: NALTREXONE
     Indication: Pain
     Dosage: 1 MILLIGRAM, QD
     Route: 048
  3. FENTANYL [Suspect]
     Active Substance: FENTANYL\FENTANYL CITRATE
     Indication: Pain
     Dosage: UNK
     Route: 065
  4. ALCOHOL [Suspect]
     Active Substance: ALCOHOL
     Indication: Pain
     Dosage: UNK
     Route: 065

REACTIONS (19)
  - Psychomotor hyperactivity [Recovered/Resolved]
  - Leukocytosis [Recovered/Resolved]
  - Hypomagnesaemia [Recovered/Resolved]
  - Terminal ileitis [Recovered/Resolved]
  - Drug withdrawal syndrome [Recovered/Resolved]
  - Drug dependence [Unknown]
  - Body temperature fluctuation [Recovered/Resolved]
  - Tinnitus [Recovered/Resolved]
  - Restless legs syndrome [Recovered/Resolved]
  - Condition aggravated [Recovered/Resolved]
  - Panic disorder [Recovered/Resolved]
  - Muscle spasms [Recovered/Resolved]
  - Anxiety [Recovered/Resolved]
  - Tremor [Recovered/Resolved]
  - Chest pain [Recovered/Resolved]
  - Abdominal pain [Recovered/Resolved]
  - Hyperhidrosis [Recovered/Resolved]
  - Restlessness [Recovered/Resolved]
  - Product use in unapproved indication [Unknown]
